FAERS Safety Report 8591036-8 (Version None)
Quarter: 2012Q3

REPORT INFORMATION
  Report Type: 
  Country: None (occurrence: None)
  Receive Date: 20120813
  Receipt Date: 20120803
  Transmission Date: 20120928
  Serious: Yes (Other)
  Sender: FDA-Public Use
  Company Number: US-CELGENEUS-163-21880-12053400

PATIENT
  Sex: Female

DRUGS (8)
  1. REVLIMID [Suspect]
     Indication: MULTIPLE MYELOMA
     Dosage: 25 MILLIGRAM
     Route: 048
     Dates: start: 20120521, end: 20120529
  2. ACETAMINOPHEN PM [Concomitant]
     Route: 048
  3. DECADRON PHOSPHATE [Concomitant]
     Indication: MULTIPLE MYELOMA
     Dosage: 2.8571 MILLIGRAM
     Route: 065
     Dates: start: 20120604
  4. DECADRON PHOSPHATE [Concomitant]
     Dosage: 2.8571 MILLIGRAM
     Route: 065
     Dates: start: 20120716
  5. CALCIUM [Concomitant]
     Dosage: 1200 MILLIGRAM
     Route: 048
  6. DECADRON PHOSPHATE [Concomitant]
     Dosage: 2.8571 MILLIGRAM
     Route: 065
     Dates: start: 20120604
  7. FISH OIL [Concomitant]
     Route: 048
  8. REVLIMID [Suspect]
     Dosage: 10 MILLIGRAM
     Route: 048
     Dates: start: 20120616

REACTIONS (4)
  - ORAL MUCOSAL BLISTERING [None]
  - FEELING COLD [None]
  - NIGHT SWEATS [None]
  - DRUG INTOLERANCE [None]
